FAERS Safety Report 17779168 (Version 1)
Quarter: 2020Q2

REPORT INFORMATION
  Report Type: Report from Study
  Country: CO (occurrence: CO)
  Receive Date: 20200513
  Receipt Date: 20200513
  Transmission Date: 20200714
  Serious: Yes (Hospitalization)
  Sender: FDA-Public Use
  Company Number: NVSC2020CO071346

PATIENT
  Sex: Male
  Weight: 65 kg

DRUGS (3)
  1. JAKAVI [Suspect]
     Active Substance: RUXOLITINIB
     Indication: MYELOFIBROSIS
     Dosage: 20 MG, Q12H
     Route: 048
     Dates: start: 2016
  2. LAMOTRIGINE. [Suspect]
     Active Substance: LAMOTRIGINE
     Indication: EPILEPSY
     Dosage: 200 MG, Q12H
     Route: 048
  3. LEVETIRACETAM. [Suspect]
     Active Substance: LEVETIRACETAM
     Indication: EPILEPSY
     Dosage: 1000 MG, Q12H
     Route: 048

REACTIONS (14)
  - Insomnia [Recovered/Resolved]
  - Chest pain [Unknown]
  - Renal disorder [Unknown]
  - Umbilical hernia [Unknown]
  - Gastric cancer [Unknown]
  - Cardiac murmur [Unknown]
  - Asphyxia [Unknown]
  - Abdominal distension [Not Recovered/Not Resolved]
  - Splenomegaly [Unknown]
  - Decreased appetite [Recovered/Resolved]
  - Second primary malignancy [Unknown]
  - Fluid retention [Unknown]
  - Inflammation [Recovered/Resolved]
  - Myelofibrosis [Unknown]

NARRATIVE: CASE EVENT DATE: 2017
